FAERS Safety Report 10483107 (Version 3)
Quarter: 2014Q4

REPORT INFORMATION
  Report Type: Spontaneous
  Country: FR (occurrence: FR)
  Receive Date: 20140930
  Receipt Date: 20141024
  Transmission Date: 20150528
  Serious: Yes (Hospitalization)
  Sender: FDA-Public Use
  Company Number: FR-ROCHE-1466169

PATIENT
  Age: 41 Year
  Sex: Female

DRUGS (20)
  1. METHOTREXATE [Suspect]
     Active Substance: METHOTREXATE
     Indication: ACUTE BIPHENOTYPIC LEUKAEMIA
     Route: 037
     Dates: start: 20140616, end: 20140616
  2. PENTACARINAT [Suspect]
     Active Substance: PENTAMIDINE ISETHIONATE
     Indication: PROPHYLAXIS
     Route: 045
     Dates: start: 20140606, end: 20140606
  3. ZELITREX [Suspect]
     Active Substance: VALACYCLOVIR HYDROCHLORIDE
     Indication: PROPHYLAXIS
     Route: 048
     Dates: start: 20140607, end: 20140706
  4. EXACYL [Suspect]
     Active Substance: TRANEXAMIC ACID
     Indication: PRODUCT USED FOR UNKNOWN INDICATION
     Route: 048
     Dates: start: 201405
  5. ROCEPHINE [Suspect]
     Active Substance: CEFTRIAXONE SODIUM
     Indication: PRODUCT USED FOR UNKNOWN INDICATION
     Route: 041
     Dates: start: 20140702, end: 20140713
  6. DEXAMETHASONE. [Suspect]
     Active Substance: DEXAMETHASONE
     Indication: ACUTE BIPHENOTYPIC LEUKAEMIA
     Route: 041
     Dates: start: 20140607, end: 20140610
  7. AUGMENTIN [Suspect]
     Active Substance: AMOXICILLIN\CLAVULANATE POTASSIUM
     Indication: CYSTITIS
     Route: 048
     Dates: start: 20140623, end: 20140630
  8. ENDOXAN [Suspect]
     Active Substance: CYCLOPHOSPHAMIDE
     Indication: ACUTE BIPHENOTYPIC LEUKAEMIA
     Route: 041
     Dates: start: 20140607, end: 20140608
  9. TAZOCILLINE [Suspect]
     Active Substance: PIPERACILLIN SODIUM\TAZOBACTAM SODIUM
     Indication: PRODUCT USED FOR UNKNOWN INDICATION
     Route: 041
     Dates: start: 20140615, end: 20140721
  10. CYTARABINE. [Suspect]
     Active Substance: CYTARABINE
     Route: 041
     Dates: start: 20140627, end: 20140630
  11. DEPAKINE CHRONO [Suspect]
     Active Substance: VALPROATE SODIUM
     Indication: PRODUCT USED FOR UNKNOWN INDICATION
     Route: 048
  12. LUTERAN [Suspect]
     Active Substance: CHLORMADINONE ACETATE
     Indication: PRODUCT USED FOR UNKNOWN INDICATION
     Route: 048
     Dates: start: 201405
  13. VINCRISTINE [Suspect]
     Active Substance: VINCRISTINE
     Indication: ACUTE BIPHENOTYPIC LEUKAEMIA
     Route: 041
     Dates: start: 20140610, end: 20140610
  14. CYTARABINE. [Suspect]
     Active Substance: CYTARABINE
     Indication: ACUTE BIPHENOTYPIC LEUKAEMIA
     Route: 037
     Dates: start: 20140620, end: 20140620
  15. METHYLPREDNISOLONE. [Suspect]
     Active Substance: METHYLPREDNISOLONE
     Indication: ACUTE BIPHENOTYPIC LEUKAEMIA
     Route: 037
     Dates: start: 20140616
  16. IDARUBICIN [Suspect]
     Active Substance: IDARUBICIN
     Indication: ACUTE BIPHENOTYPIC LEUKAEMIA
     Route: 041
     Dates: start: 20140627, end: 20140629
  17. UROMITEXAN [Suspect]
     Active Substance: MESNA
     Indication: PRODUCT USED FOR UNKNOWN INDICATION
     Route: 041
     Dates: start: 20140607, end: 20140608
  18. NOXAFIL [Suspect]
     Active Substance: POSACONAZOLE
     Indication: PROPHYLAXIS
     Route: 048
     Dates: start: 20140607, end: 20140706
  19. AMLOR [Suspect]
     Active Substance: AMLODIPINE BESYLATE
     Indication: PRODUCT USED FOR UNKNOWN INDICATION
     Route: 048
     Dates: start: 20140705
  20. INEXIUM [Suspect]
     Active Substance: ESOMEPRAZOLE
     Indication: PRODUCT USED FOR UNKNOWN INDICATION
     Route: 048

REACTIONS (2)
  - Axonal neuropathy [Not Recovered/Not Resolved]
  - Balance disorder [Recovering/Resolving]

NARRATIVE: CASE EVENT DATE: 20140715
